FAERS Safety Report 6396496-9 (Version None)
Quarter: 2009Q4

REPORT INFORMATION
  Report Type: 
  Country: None (occurrence: None)
  Receive Date: 20091012
  Receipt Date: 20091006
  Transmission Date: 20100525
  Serious: Yes (Hospitalization)
  Sender: FDA-Public Use
  Company Number: DE-AVENTIS-200912507DE

PATIENT
  Age: 55 Year
  Sex: Male

DRUGS (4)
  1. TAXOTERE [Suspect]
     Route: 041
     Dates: start: 20090818, end: 20090818
  2. FLUOROURACIL [Suspect]
     Route: 041
     Dates: end: 20090818
  3. OXALIPLATIN [Suspect]
     Route: 041
     Dates: start: 20090818, end: 20090818
  4. FOLINIC ACID [Concomitant]
     Route: 041
     Dates: end: 20090818

REACTIONS (1)
  - ENTEROCUTANEOUS FISTULA [None]
